FAERS Safety Report 7012014-6 (Version None)
Quarter: 2010Q3

REPORT INFORMATION
  Report Type: 
  Country: None (occurrence: None)
  Receive Date: 20100924
  Receipt Date: 20100921
  Transmission Date: 20110219
  Serious: Yes (Hospitalization)
  Sender: FDA-Public Use
  Company Number: PHHO2010IT13588

PATIENT
  Sex: Male

DRUGS (6)
  1. BLINDED ALISKIREN ALI+TAB+CF [Suspect]
     Dosage: CODE NOT BROKEN
     Route: 048
     Dates: start: 20100825, end: 20100901
  2. ENALAPRIL MALEATE [Suspect]
     Dosage: CODE NOT BROKEN
     Route: 048
     Dates: start: 20100825, end: 20100901
  3. BLINDED NO TREATMENT RECEIVED NOMED [Suspect]
     Dosage: CODE NOT BROKEN
     Route: 048
     Dates: start: 20100825, end: 20100901
  4. BLINDED ALISKIREN ALI+TAB+CF [Suspect]
     Dosage: CODE NOT BROKEN
     Route: 048
     Dates: start: 20100921
  5. ENALAPRIL MALEATE [Suspect]
     Dosage: CODE NOT BROKEN
     Route: 048
     Dates: start: 20100921
  6. BLINDED NO TREATMENT RECEIVED NOMED [Suspect]
     Dosage: CODE NOT BROKEN
     Route: 048
     Dates: start: 20100921

REACTIONS (1)
  - RECTAL HAEMORRHAGE [None]
